FAERS Safety Report 4489637-1 (Version None)
Quarter: 2004Q4

REPORT INFORMATION
  Report Type: 
  Country: None (occurrence: None)
  Receive Date: 20041026
  Receipt Date: 20041012
  Transmission Date: 20050328
  Serious: Yes (Death, Hospitalization, Other)
  Sender: FDA-Public Use
  Company Number: A-CH2004-06594

PATIENT
  Age: 25 Year
  Sex: Female
  Weight: 20.8655 kg

DRUGS (8)
  1. TRACLEER [Suspect]
     Indication: PULMONARY HYPERTENSION
     Dosage: 125 MG, BID, ORAL
     Route: 048
     Dates: start: 20021123, end: 20041001
  2. CORTANCYL (PREDNISONE) [Concomitant]
  3. AZATHIOPRINE [Concomitant]
  4. CAPTOPRIL [Concomitant]
  5. LASIX [Concomitant]
  6. PREVISCAN (FLUINDIONE) [Concomitant]
  7. CHLORMADINONE ACETATE TAB [Concomitant]
  8. FLOLAN [Concomitant]

REACTIONS (8)
  - ABORTION MISSED [None]
  - CARDIAC ARREST [None]
  - DRUG EXPOSURE DURING PREGNANCY [None]
  - MEDICATION ERROR [None]
  - PRURITUS GENERALISED [None]
  - PULMONARY HYPERTENSION [None]
  - TREATMENT NONCOMPLIANCE [None]
  - UNINTENDED PREGNANCY [None]
